FAERS Safety Report 10286935 (Version 1)
Quarter: 2014Q3

REPORT INFORMATION
  Report Type: Spontaneous
  Country: US (occurrence: None)
  Receive Date: 20140707
  Receipt Date: 20140707
  Transmission Date: 20150326
  Serious: Yes (Congenital Anomaly, Other)
  Sender: FDA-Public Use
  Company Number: 2014AP003543

PATIENT
  Age: 0 Day
  Sex: Female

DRUGS (1)
  1. PAXIL [Suspect]
     Active Substance: PAROXETINE HYDROCHLORIDE
     Indication: MAJOR DEPRESSION
     Route: 064

REACTIONS (5)
  - Hypertelorism of orbit [None]
  - Hydrocephalus [None]
  - Foetal exposure during pregnancy [None]
  - Congenital central nervous system anomaly [None]
  - Holoprosencephaly [None]

NARRATIVE: CASE EVENT DATE: 19950712
